FAERS Safety Report 13422098 (Version 1)
Quarter: 2017Q2

REPORT INFORMATION
  Report Type: Report from Study
  Country: US (occurrence: US)
  Receive Date: 20170410
  Receipt Date: 20170410
  Transmission Date: 20170830
  Serious: Yes (Other)
  Sender: FDA-Public Use
  Company Number: US-ROCHE-1915466

PATIENT

DRUGS (3)
  1. BEVACIZUMAB [Suspect]
     Active Substance: BEVACIZUMAB
     Indication: ENDOMETRIAL CANCER RECURRENT
     Route: 065
  2. CARBOPLATIN. [Suspect]
     Active Substance: CARBOPLATIN
     Indication: ENDOMETRIAL CANCER RECURRENT
     Dosage: AT AREA UNDER CURVE OF 5
     Route: 065
  3. PACLITAXEL. [Suspect]
     Active Substance: PACLITAXEL
     Indication: ENDOMETRIAL CANCER RECURRENT
     Dosage: VER 3 HOURS
     Route: 065

REACTIONS (29)
  - Anaemia [Unknown]
  - Diarrhoea [Unknown]
  - Sensory disturbance [Unknown]
  - Tinnitus [Unknown]
  - Epistaxis [Unknown]
  - Eye disorder [Unknown]
  - Leukopenia [Unknown]
  - Decreased appetite [Unknown]
  - Visual impairment [Unknown]
  - Depression [Unknown]
  - Thrombocytopenia [Unknown]
  - Gastrointestinal disorder [Unknown]
  - Fatigue [Unknown]
  - Vomiting [Unknown]
  - Haemorrhage [Unknown]
  - Dyspnoea [Unknown]
  - Infection [Unknown]
  - Rash [Unknown]
  - Rhinitis [Unknown]
  - Neutropenia [Unknown]
  - Dysphonia [Unknown]
  - Lymphatic disorder [Unknown]
  - Pain [Unknown]
  - Nausea [Unknown]
  - Alopecia [Unknown]
  - Hypertension [Unknown]
  - Hypersensitivity [Unknown]
  - Cough [Unknown]
  - Hypercalcaemia [Unknown]
